FAERS Safety Report 7259175-1 (Version None)
Quarter: 2011Q1

REPORT INFORMATION
  Report Type: 
  Country: None (occurrence: None)
  Receive Date: 20110129
  Receipt Date: 20100618
  Transmission Date: 20110831
  Serious: No
  Sender: FDA-Public Use
  Company Number: US-ABBOTT-10P-163-0653652-00

PATIENT
  Age: 30 Year
  Sex: Male
  Weight: 108.05 kg

DRUGS (3)
  1. HUMIRA [Suspect]
     Dosage: 2 PENS USED 14 DAYS AFTER FIRST INJECT
     Route: 058
  2. HUMIRA [Suspect]
     Indication: CROHN'S DISEASE
     Dosage: 4 PENS
     Route: 058
     Dates: start: 20100407, end: 20100407
  3. HUMIRA [Suspect]
     Dosage: 2 PENS USED 14 DAYS AFTER 1ST INJECTION.
     Route: 058
     Dates: end: 20100512

REACTIONS (2)
  - FOLLICULITIS [None]
  - ABSCESS [None]
